FAERS Safety Report 21036860 (Version 2)
Quarter: 2022Q3

REPORT INFORMATION
  Report Type: Spontaneous
  Country: US (occurrence: US)
  Receive Date: 20220702
  Receipt Date: 20220707
  Transmission Date: 20221027
  Serious: Yes (Other)
  Sender: FDA-Public Use
  Company Number: US-UNITED THERAPEUTICS-UNT-2022-012043

PATIENT
  Age: 44 Year
  Sex: Female

DRUGS (3)
  1. TYVASO [Suspect]
     Active Substance: TREPROSTINIL
     Indication: Pulmonary arterial hypertension
     Dosage: UNK
     Dates: start: 20210528
  2. TYVASO [Suspect]
     Active Substance: TREPROSTINIL
     Indication: Lung disorder
     Dosage: 48 ?G, QID
  3. TYVASO [Suspect]
     Active Substance: TREPROSTINIL
     Indication: Hypoxia

REACTIONS (7)
  - Neuropathy peripheral [Recovering/Resolving]
  - Arthropathy [Unknown]
  - Joint effusion [Unknown]
  - Arthralgia [Unknown]
  - Lung disorder [Unknown]
  - Hypoxia [Unknown]
  - Off label use [Unknown]

NARRATIVE: CASE EVENT DATE: 20210528
